FAERS Safety Report 16109181 (Version 1)
Quarter: 2019Q1

REPORT INFORMATION
  Report Type: Spontaneous
  Country: US (occurrence: US)
  Receive Date: 20190323
  Receipt Date: 20190323
  Transmission Date: 20190418
  Serious: No
  Sender: FDA-Public Use
  Company Number: US-THERAPEUTICSMD-2019TMD00239

PATIENT
  Sex: Female
  Weight: 80.73 kg

DRUGS (3)
  1. UNSPECIFIED LUBRICANT [Concomitant]
  2. IMVEXXY [Suspect]
     Active Substance: ESTRADIOL
     Indication: DYSPAREUNIA
     Dosage: 10 ?G, 1X/DAY AT BEDTIME
     Route: 067
     Dates: start: 201901, end: 2019
  3. IMVEXXY [Suspect]
     Active Substance: ESTRADIOL
     Dosage: 10 ?G, 2X/WEEK
     Route: 067
     Dates: start: 2019

REACTIONS (2)
  - Uterine cervix atrophy [Not Recovered/Not Resolved]
  - Drug effect incomplete [Not Recovered/Not Resolved]

NARRATIVE: CASE EVENT DATE: 2019
